FAERS Safety Report 5028221-8 (Version None)
Quarter: 2006Q2

REPORT INFORMATION
  Report Type: 
  Country: None (occurrence: None)
  Receive Date: 20060609
  Receipt Date: 20060526
  Transmission Date: 20061013
  Serious: Yes (Hospitalization)
  Sender: FDA-Public Use
  Company Number: 2006SP002211

PATIENT
  Age: 17 Year
  Sex: Female

DRUGS (2)
  1. LUNESTA [Suspect]
     Dosage: SEE IMAGE, ORAL
     Route: 048
     Dates: start: 20060401, end: 20060401
  2. LUNESTA [Suspect]
     Dosage: SEE IMAGE, ORAL
     Route: 048
     Dates: start: 20060524, end: 20060524

REACTIONS (3)
  - FALL [None]
  - INTENTIONAL OVERDOSE [None]
  - SUICIDE ATTEMPT [None]
